FAERS Safety Report 14006319 (Version 1)
Quarter: 2017Q3

REPORT INFORMATION
  Report Type: Spontaneous
  Country: US (occurrence: US)
  Receive Date: 20170924
  Receipt Date: 20170924
  Transmission Date: 20171128
  Serious: No
  Sender: FDA-Public Use
  Company Number: US-B.I. PHARMACEUTICALS,INC./RIDGEFIELD-2017-BI-051073

PATIENT
  Age: 59 Year
  Sex: Female

DRUGS (9)
  1. LEVOTHYROXINE. [Concomitant]
     Active Substance: LEVOTHYROXINE
     Indication: HYPOTHYROIDISM
     Dosage: ONE TABLET ONCE A DAY;  FORM STRENGTH: 75 MCG; FORMULATION: TABLET
     Route: 048
  2. PREDNISONE. [Concomitant]
     Active Substance: PREDNISONE
     Indication: CHRONIC OBSTRUCTIVE PULMONARY DISEASE
     Dosage: ONE OR TWO TABLETS A DAY;  FORM STRENGTH: 5 MG; FORMULATION: TABLET
     Route: 048
  3. TYLENOL [Concomitant]
     Active Substance: ACETAMINOPHEN
     Indication: OSTEOARTHRITIS
  4. CLONAZEPAM. [Concomitant]
     Active Substance: CLONAZEPAM
     Indication: ANXIETY
     Dosage: ONE TABLET THREE TIMES A DAY;  FORM STRENGTH: 0.5 MG; FORMULATION: TABLET
     Route: 048
  5. ASTHMANEX TWIST INHALER [Concomitant]
     Indication: ASTHMA
     Dosage: TWO PUFFS FOUR TO SIX HOURS AS NEEDED;
  6. SPIRIVA [Suspect]
     Active Substance: TIOTROPIUM BROMIDE MONOHYDRATE
     Indication: CHRONIC OBSTRUCTIVE PULMONARY DISEASE
     Dosage: ONE CAPSULE A DAY;  FORM STRENGTH: 18 MCG; FORMULATION: CAPSULE? ADMINISTRATION CORRECT? YES ?ACTION
     Route: 055
     Dates: start: 2008, end: 20170911
  7. TYLENOL [Concomitant]
     Active Substance: ACETAMINOPHEN
     Indication: PAIN
     Dosage: THREE TABLETS THREE TIMES A DAY;  FORM STRENGTH: 325 MG; FORMULATION: TABLET
     Route: 048
  8. PROVENTAL [Concomitant]
     Indication: ASTHMA
     Dosage: ONE TO TWO PUFFS EVERY FOUR TO SIX HOURS AS NEEDED;
     Route: 055
  9. PROVENTAL [Concomitant]
     Indication: CHRONIC OBSTRUCTIVE PULMONARY DISEASE

REACTIONS (1)
  - Coeliac disease [Not Recovered/Not Resolved]

NARRATIVE: CASE EVENT DATE: 201708
